FAERS Safety Report 17026156 (Version 1)
Quarter: 2019Q4

REPORT INFORMATION
  Report Type: Spontaneous
  Country: JP (occurrence: JP)
  Receive Date: 20191113
  Receipt Date: 20191113
  Transmission Date: 20200122
  Serious: Yes (Other)
  Sender: FDA-Public Use
  Company Number: JP-BRISTOL-MYERS SQUIBB COMPANY-BMS-2018-071811

PATIENT
  Age: 69 Year
  Sex: Male
  Weight: 52.6 kg

DRUGS (4)
  1. TOUGHMAC E [Suspect]
     Active Substance: AMYLASE\LIPASE\PROTEASE
     Indication: DYSPEPSIA
     Dosage: 1 DOSAGE FORM, Q8H
     Route: 048
     Dates: start: 20170317
  2. MOSAPRIDE CITRATE [Concomitant]
     Active Substance: MOSAPRIDE CITRATE
     Indication: DYSPEPSIA
     Dosage: 1 DOSAGE FORM, Q8H
     Route: 048
     Dates: start: 20170317
  3. NIVOLUMAB [Suspect]
     Active Substance: NIVOLUMAB
     Indication: GASTRIC CANCER
     Dosage: 3 MILLIGRAM/KILOGRAM, Q2WK
     Route: 041
     Dates: start: 20171031
  4. NIVOLUMAB [Suspect]
     Active Substance: NIVOLUMAB
     Indication: PRODUCT USED FOR UNKNOWN INDICATION
     Dosage: UNK
     Route: 065
     Dates: start: 20180311

REACTIONS (3)
  - Hypothyroidism [Recovering/Resolving]
  - Cortisol decreased [Unknown]
  - Muscular weakness [Unknown]

NARRATIVE: CASE EVENT DATE: 20180320
